FAERS Safety Report 21527609 (Version 1)
Quarter: 2022Q4

REPORT INFORMATION
  Report Type: Spontaneous
  Country: US (occurrence: US)
  Receive Date: 20221031
  Receipt Date: 20221031
  Transmission Date: 20230112
  Serious: Yes (Other)
  Sender: FDA-Public Use
  Company Number: US-MYLANLABS-2022M1118357

PATIENT
  Age: 65 Year
  Sex: Male

DRUGS (2)
  1. FLUCONAZOLE [Suspect]
     Active Substance: FLUCONAZOLE
     Indication: Cutaneous leishmaniasis
     Dosage: UNK
     Route: 048
  2. MILTEFOSINE [Concomitant]
     Active Substance: MILTEFOSINE
     Indication: Cutaneous leishmaniasis
     Dosage: 50 MILLIGRAM, TID, ADMINISTERED THREE TIMES DAILY
     Route: 048

REACTIONS (1)
  - Treatment failure [Unknown]
